FAERS Safety Report 4596413-8 (Version None)
Quarter: 2005Q1

REPORT INFORMATION
  Report Type: 
  Country: None (occurrence: None)
  Receive Date: 20050228
  Receipt Date: 20050214
  Transmission Date: 20050727
  Serious: Yes (Hospitalization)
  Sender: FDA-Public Use
  Company Number: 2005029586

PATIENT
  Age: 43 Year
  Sex: Male

DRUGS (9)
  1. NELFINAVIR MESILATE (NELFINAVIR MESILATE) [Suspect]
     Indication: HIV INFECTION
     Dosage: 2250 MG (750 MG, 3 IN 1 D);ORAL
     Route: 048
     Dates: start: 19980907, end: 20000601
  2. LAMIVUDINE [Suspect]
     Indication: HIV INFECTION
     Dosage: 300 MG (150 MG, 2 IN 1 D); ORAL
     Route: 048
     Dates: start: 19980907, end: 20000601
  3. STAVUDINE [Suspect]
     Indication: HIV INFECTION
     Dosage: 80 MG (40 MG, 2 IN 1 D); ORAL
     Route: 048
     Dates: start: 19980907, end: 20000601
  4. CLARITHROMYCIN [Concomitant]
  5. ETHAMBUTOL HCL [Concomitant]
  6. CLARITHROMYCIN [Concomitant]
  7. FLUCONAZOLE [Concomitant]
  8. ANTIBIOTICS [Concomitant]
  9. PENTAMIDINE ISETHIONATE [Concomitant]

REACTIONS (4)
  - ATELECTASIS [None]
  - BLOOD BETA-D-GLUCAN INCREASED [None]
  - IMMUNE RECONSTITUTION SYNDROME [None]
  - PNEUMOCYSTIS JIROVECI PNEUMONIA [None]
